FAERS Safety Report 7906693-6 (Version None)
Quarter: 2011Q4

REPORT INFORMATION
  Report Type: 
  Country: None (occurrence: None)
  Receive Date: 20111109
  Receipt Date: 20111109
  Transmission Date: 20120403
  Serious: No
  Sender: FDA-Public Use
  Company Number: None

PATIENT
  Sex: Male

DRUGS (1)
  1. GILENYA [Suspect]
     Indication: MULTIPLE SCLEROSIS
     Dosage: 0.5MG 1 QD PO
     Route: 048
     Dates: start: 20111001, end: 20111107

REACTIONS (5)
  - DIARRHOEA [None]
  - DECREASED APPETITE [None]
  - COUGH [None]
  - FATIGUE [None]
  - DYSPNOEA [None]
